FAERS Safety Report 7898945-3 (Version None)
Quarter: 2011Q4

REPORT INFORMATION
  Report Type: 
  Country: None (occurrence: None)
  Receive Date: 20111107
  Receipt Date: 20111028
  Transmission Date: 20120403
  Serious: Yes (Hospitalization)
  Sender: FDA-Public Use
  Company Number: US-ASTELLAS-2011US005768

PATIENT
  Sex: Female
  Weight: 60 kg

DRUGS (9)
  1. NORVASC [Concomitant]
     Indication: PRODUCT USED FOR UNKNOWN INDICATION
     Dosage: 5 MG, UID/QD
     Route: 048
  2. LOVENOX [Concomitant]
     Indication: PRODUCT USED FOR UNKNOWN INDICATION
     Dosage: 80 MG, UID/QD
     Route: 058
  3. TESSALON [Concomitant]
     Indication: PRODUCT USED FOR UNKNOWN INDICATION
     Dosage: 100 MG, BID
     Route: 048
  4. MIRALAX [Concomitant]
     Indication: PRODUCT USED FOR UNKNOWN INDICATION
     Dosage: 17 G, UID/QD
     Route: 048
  5. ERLOTINIB HYDROCHLORIDE [Suspect]
     Dosage: 75 MG, 3-25 MG TABLETS, UID/QD
     Route: 048
     Dates: start: 20111013
  6. COMBIVENT [Concomitant]
     Indication: PRODUCT USED FOR UNKNOWN INDICATION
     Dosage: 18-103 UG,  2 PUFFS TID
     Route: 055
  7. CENTRUM SILVER [Concomitant]
     Indication: PRODUCT USED FOR UNKNOWN INDICATION
     Dosage: 500-250 UG, UID/QD
     Route: 048
  8. ERLOTINIB HYDROCHLORIDE [Suspect]
     Indication: NON-SMALL CELL LUNG CANCER METASTATIC
     Dosage: 150 MG, UID/QD
     Route: 048
     Dates: start: 20110811, end: 20110912
  9. RANITIDINE HCL [Concomitant]
     Indication: PRODUCT USED FOR UNKNOWN INDICATION
     Dosage: 150 MG, BID
     Route: 048

REACTIONS (14)
  - VITREOUS FLOATERS [None]
  - CELLULITIS [None]
  - ERYTHEMA [None]
  - RENAL FAILURE ACUTE [None]
  - WHITE BLOOD CELLS URINE [None]
  - FAILURE TO THRIVE [None]
  - RASH [None]
  - PULMONARY EMBOLISM [None]
  - RESPIRATORY FAILURE [None]
  - VISION BLURRED [None]
  - DRY SKIN [None]
  - ANAEMIA [None]
  - BLOOD PRESSURE INCREASED [None]
  - DIARRHOEA [None]
